FAERS Safety Report 7832058-1 (Version None)
Quarter: 2011Q4

REPORT INFORMATION
  Report Type: 
  Country: None (occurrence: None)
  Receive Date: 20111022
  Receipt Date: 20111017
  Transmission Date: 20120403
  Serious: Yes (Other)
  Sender: FDA-Public Use
  Company Number: US-VERTEX PHARMACEUTICALS INC.-AE-2011-002403

PATIENT
  Sex: Female
  Weight: 60.836 kg

DRUGS (3)
  1. INCIVEK [Suspect]
     Indication: HEPATITIS C
     Route: 048
     Dates: start: 20110916
  2. PEGASYS [Concomitant]
     Indication: HEPATITIS C
     Route: 058
     Dates: start: 20110916
  3. RIBAVIRIN [Concomitant]
     Indication: HEPATITIS C
     Route: 048
     Dates: start: 20110916

REACTIONS (11)
  - DYSARTHRIA [None]
  - FATIGUE [None]
  - SOMNOLENCE [None]
  - COUGH [None]
  - EYE PRURITUS [None]
  - MENTAL IMPAIRMENT [None]
  - TREMOR [None]
  - DYSGRAPHIA [None]
  - RASH [None]
  - HAEMORRHOIDS [None]
  - GAIT DISTURBANCE [None]
